FAERS Safety Report 6662862-7 (Version None)
Quarter: 2010Q1

REPORT INFORMATION
  Report Type: 
  Country: None (occurrence: None)
  Receive Date: 20100322
  Receipt Date: 20100315
  Transmission Date: 20100710
  Serious: No
  Sender: FDA-Public Use
  Company Number: 2010-00336

PATIENT
  Age: 78 Year
  Sex: Female
  Weight: 86.1834 kg

DRUGS (14)
  1. ZICAM COLD REMEDY RAPIDMELTS [Suspect]
     Dates: start: 20100301, end: 20100308
  2. VYTORIN [Concomitant]
  3. VERAPAMIL [Concomitant]
  4. HYZAAR [Concomitant]
  5. LEVOTHROID [Concomitant]
  6. OXYBUTYININ [Concomitant]
  7. NEBUTONE [Concomitant]
  8. ASPIRIN [Concomitant]
  9. OSTEO BIFLEX [Concomitant]
  10. FERROUS GLUCONATE [Concomitant]
  11. VITAMIN B6 AND B12 [Concomitant]
  12. CALCIUM [Concomitant]
  13. VITAMIN D [Concomitant]
  14. TEBS [Concomitant]

REACTIONS (1)
  - AGEUSIA [None]
